FAERS Safety Report 15047306 (Version 1)
Quarter: 2018Q2

REPORT INFORMATION
  Report Type: Spontaneous
  Country: DE (occurrence: DE)
  Receive Date: 20180621
  Receipt Date: 20180621
  Transmission Date: 20180711
  Serious: Yes (Hospitalization)
  Sender: FDA-Public Use
  Company Number: DE-TEVA-2018-DE-910918

PATIENT
  Age: 55 Year
  Sex: Male
  Weight: 90 kg

DRUGS (8)
  1. PANTOPRAZOL [Concomitant]
     Active Substance: PANTOPRAZOLE SODIUM
     Dosage: 1 DOSAGE FORMS DAILY; 40 MG, 1-0-0-0, TABLETTEN
     Route: 048
  2. IFOSFAMIDE. [Suspect]
     Active Substance: IFOSFAMIDE
     Dosage: 3000 MG/M?, SCHEME, INJECTION/INFUSION SOLUTION
     Route: 042
  3. CIPROFLOXACIN. [Concomitant]
     Active Substance: CIPROFLOXACIN
     Dosage: 500 MG, SCHEMA, TABLETTEN
     Route: 048
  4. DOXORUBICIN [Suspect]
     Active Substance: DOXORUBICIN
     Dosage: 20 MG/M?, SCHEME, INJECTION/INFUSION SOLUTION
     Route: 042
  5. ETOPOSIDE. [Suspect]
     Active Substance: ETOPOSIDE
     Dosage: 150 MG/M?, SCHEME, INJECTION/INFUSION SOLUTION
     Route: 042
  6. VINCRISTINE [Suspect]
     Active Substance: VINCRISTINE
     Dosage: 2 MG, SCHEMA, INJECTION/INFUSION SOLUTION
     Route: 042
  7. METOCLOPRAMID [Concomitant]
     Active Substance: METOCLOPRAMIDE
     Dosage: 10 MG, BEDARF, TABLETTEN
     Route: 048
  8. AMPHO-MORONAL [Concomitant]
     Active Substance: AMPHOTERICIN B
     Dosage: 1 LOZENGE, SCHEME, LOZENGES
     Route: 048

REACTIONS (3)
  - Pyrexia [Unknown]
  - Malaise [Unknown]
  - Glossodynia [Unknown]

NARRATIVE: CASE EVENT DATE: 201708
